FAERS Safety Report 25718473 (Version 1)
Quarter: 2025Q3

REPORT INFORMATION
  Report Type: Spontaneous
  Country: TR (occurrence: TR)
  Receive Date: 20250823
  Receipt Date: 20250823
  Transmission Date: 20251021
  Serious: Yes (Hospitalization)
  Sender: ACCORD
  Company Number: TR-MLMSERVICE-20250804-PI601222-00125-1

PATIENT
  Age: 78 Year
  Sex: Male

DRUGS (7)
  1. DONEPEZIL HYDROCHLORIDE [Suspect]
     Active Substance: DONEPEZIL HYDROCHLORIDE
     Indication: Dementia
  2. TRIFLUOPERAZINE [Suspect]
     Active Substance: TRIFLUOPERAZINE HYDROCHLORIDE
     Indication: Nausea
  3. MEDAZEPAM [Concomitant]
     Active Substance: MEDAZEPAM
     Indication: Nausea
  4. MEDAZEPAM [Concomitant]
     Active Substance: MEDAZEPAM
     Indication: Insomnia
  5. TRIFLUOPERAZINE [Suspect]
     Active Substance: TRIFLUOPERAZINE HYDROCHLORIDE
     Indication: Restlessness
  6. MEDAZEPAM [Concomitant]
     Active Substance: MEDAZEPAM
     Indication: Restlessness
  7. TRIFLUOPERAZINE [Suspect]
     Active Substance: TRIFLUOPERAZINE HYDROCHLORIDE
     Indication: Insomnia

REACTIONS (2)
  - Oesophageal achalasia [Unknown]
  - Condition aggravated [Unknown]
